FAERS Safety Report 5800454-X (Version None)
Quarter: 2008Q3

REPORT INFORMATION
  Report Type: 
  Country: None (occurrence: None)
  Receive Date: 20080703
  Receipt Date: 20080626
  Transmission Date: 20090109
  Serious: Yes (Life-Threatening, Hospitalization, Other)
  Sender: FDA-Public Use
  Company Number: US-BAYER-200823776NA

PATIENT
  Age: 46 Year
  Sex: Male
  Weight: 102 kg

DRUGS (2)
  1. MAGNEVIST [Suspect]
     Indication: NUCLEAR MAGNETIC RESONANCE IMAGING ABDOMINAL
     Dosage: TOTAL DAILY DOSE: 20 ML
     Route: 042
     Dates: start: 20080116, end: 20080116
  2. LORAZEPAM [Concomitant]
     Indication: PREMEDICATION
     Dates: start: 20080116

REACTIONS (6)
  - BLOOD PRESSURE DECREASED [None]
  - DEPRESSED LEVEL OF CONSCIOUSNESS [None]
  - PRURITUS [None]
  - SWOLLEN TONGUE [None]
  - URINARY INCONTINENCE [None]
  - URTICARIA [None]
